FAERS Safety Report 11151833 (Version 2)
Quarter: 2015Q2

REPORT INFORMATION
  Report Type: Spontaneous
  Country: US (occurrence: US)
  Receive Date: 20150601
  Receipt Date: 20150605
  Transmission Date: 20150821
  Serious: No
  Sender: FDA-Public Use
  Company Number: US-PFIZER INC-2015180493

PATIENT

DRUGS (1)
  1. TOVIAZ [Suspect]
     Active Substance: FESOTERODINE FUMARATE
     Dosage: 8 MG, DAILY

REACTIONS (3)
  - Intentional product use issue [Unknown]
  - Constipation [Unknown]
  - Wrong technique in drug usage process [Unknown]
